FAERS Safety Report 4956327-8 (Version None)
Quarter: 2006Q1

REPORT INFORMATION
  Report Type: 
  Country: None (occurrence: None)
  Receive Date: 20060323
  Receipt Date: 20060307
  Transmission Date: 20060701
  Serious: Yes (Other)
  Sender: FDA-Public Use
  Company Number: GR200603001747

PATIENT
  Age: 31 Year
  Sex: Female
  Weight: 69 kg

DRUGS (1)
  1. LADOSE (FLUOXETINE HYDROCHLORIDE UNKNOWN FORMULATION) [Suspect]
     Indication: MAJOR DEPRESSION
     Dosage: 20 MG, 2/D, ORAL
     Route: 048
     Dates: start: 20050711, end: 20060207

REACTIONS (2)
  - ECCHYMOSIS [None]
  - HODGKIN'S DISEASE [None]
